FAERS Safety Report 24621228 (Version 6)
Quarter: 2025Q3

REPORT INFORMATION
  Report Type: Report from Study
  Country: CA (occurrence: CA)
  Receive Date: 20241114
  Receipt Date: 20250809
  Transmission Date: 20251020
  Serious: Yes (Life-Threatening, Hospitalization, Other)
  Sender: ALEXION PHARMACEUTICALS
  Company Number: CA-AstraZeneca-2024A096158

PATIENT
  Sex: Female

DRUGS (7)
  1. TEZEPELUMAB [Suspect]
     Active Substance: TEZEPELUMAB
     Indication: Asthma
     Dates: start: 20240801, end: 20241031
  2. TEZEPELUMAB [Suspect]
     Active Substance: TEZEPELUMAB
  3. SYMBICORT [Suspect]
     Active Substance: BUDESONIDE\FORMOTEROL FUMARATE DIHYDRATE
     Indication: Asthma
     Dosage: 2 DOSAGE FORM, BID
  4. PREDNISONE [Concomitant]
     Active Substance: PREDNISONE
     Dosage: 10 MILLIGRAM, QD
     Route: 065
  5. PREDNISONE [Concomitant]
     Active Substance: PREDNISONE
     Dosage: 45 MILLIGRAM, QD
     Route: 065
     Dates: start: 20240422
  6. ATROVENT [Concomitant]
     Active Substance: IPRATROPIUM BROMIDE
     Dosage: 2 DOSAGE FORM, BID
     Dates: start: 202209
  7. SPIRIVA RESPIMAT [Concomitant]
     Active Substance: TIOTROPIUM BROMIDE
     Dosage: 2 DOSAGE FORM, QD
     Dates: start: 202201

REACTIONS (13)
  - Fluid retention [Unknown]
  - Aspiration [Unknown]
  - Dyspnoea [Unknown]
  - Throat lesion [Unknown]
  - Choking [Unknown]
  - Brain fog [Unknown]
  - Pneumonia [Unknown]
  - Lower respiratory tract infection [Unknown]
  - Wheezing [Unknown]
  - Tremor [Unknown]
  - Drug ineffective [Unknown]
  - Drug ineffective [Unknown]
  - Product dose omission issue [Unknown]
